FAERS Safety Report 9312306 (Version 2)
Quarter: 2013Q4

REPORT INFORMATION
  Report Type: Report from Study
  Country: AR (occurrence: AR)
  Receive Date: 20130528
  Receipt Date: 20131113
  Transmission Date: 20140711
  Serious: Yes (Hospitalization)
  Sender: FDA-Public Use
  Company Number: PHHY2013AR053501

PATIENT
  Sex: Female

DRUGS (2)
  1. DIOVAN [Suspect]
     Indication: HYPERTENSION
     Dosage: 80 MG, UNK
     Route: 048
     Dates: start: 201110
  2. DIOVAN [Suspect]
     Dosage: 160 MG, UNK
     Route: 048

REACTIONS (3)
  - Fall [Recovering/Resolving]
  - Humerus fracture [Recovering/Resolving]
  - Patella fracture [Recovering/Resolving]
